FAERS Safety Report 19233422 (Version 1)
Quarter: 2021Q2

REPORT INFORMATION
  Report Type: Other
  Country: US (occurrence: US)
  Receive Date: 20210507
  Receipt Date: 20210507
  Transmission Date: 20210717
  Serious: Yes (Other)
  Sender: FDA-Public Use
  Company Number: US-ROCHE-2823877

PATIENT
  Sex: Male

DRUGS (1)
  1. OCREVUS [Suspect]
     Active Substance: OCRELIZUMAB
     Indication: MULTIPLE SCLEROSIS
     Dosage: DATE OF TREATMENT: 28/SEP/2020, 12/OCT/2020?PRESCRIBED WITH 300 MG, DAY 1 AND 14 THEN 600 MG, EVERY
     Route: 042

REACTIONS (1)
  - Meningitis [Unknown]
